FAERS Safety Report 21670215 (Version 1)
Quarter: 2022Q4

REPORT INFORMATION
  Report Type: Spontaneous
  Country: GB (occurrence: GB)
  Receive Date: 20221201
  Receipt Date: 20221201
  Transmission Date: 20230112
  Serious: Yes (Other)
  Sender: FDA-Public Use
  Company Number: GB-MHRA-MED-202211240843144390-GJKMD

PATIENT
  Age: 68 Year
  Sex: Female
  Weight: 101 kg

DRUGS (4)
  1. OLANZAPINE [Suspect]
     Active Substance: OLANZAPINE
     Indication: Depression
     Dosage: INITIALLY 2.5MG, THEN 5MG AT NIGHT; THERAPY END DATE : NOT ASKED
     Route: 065
     Dates: start: 20221104
  2. DIAZEPAM [Concomitant]
     Active Substance: DIAZEPAM
     Indication: Depression
     Dates: start: 20221024
  3. VENLAFAXINE [Concomitant]
     Active Substance: VENLAFAXINE HYDROCHLORIDE
     Indication: Depression
  4. ZOPICLONE [Concomitant]
     Active Substance: ZOPICLONE
     Indication: Depression
     Dates: start: 20221025

REACTIONS (1)
  - Anxiety [Not Recovered/Not Resolved]

NARRATIVE: CASE EVENT DATE: 20221104
